FAERS Safety Report 5867277-7 (Version None)
Quarter: 2008Q3

REPORT INFORMATION
  Report Type: 
  Country: None (occurrence: None)
  Receive Date: 20080829
  Receipt Date: 20080829
  Transmission Date: 20090109
  Serious: Yes (Hospitalization)
  Sender: FDA-Public Use
  Company Number: None

PATIENT
  Sex: Male
  Weight: 59.5 kg

DRUGS (10)
  1. CYCLOPHOSPHAMIDE [Suspect]
     Dosage: 1290 MG
  2. DOXORUBICIN HYDROCHLORIDE [Suspect]
     Dosage: 86 MG
  3. PREDNISONE TAB [Suspect]
     Dosage: 200 MG
  4. RITUXIMAB [Suspect]
     Dosage: 645MG
  5. VINCRISTINE SULFATE [Suspect]
     Dosage: 2 MG
  6. ASPIRIN [Concomitant]
  7. DIOVAN [Concomitant]
  8. NORVASC [Concomitant]
  9. MULTI-VITAMIN [Concomitant]
  10. PSEUDOVENT [Concomitant]

REACTIONS (11)
  - ASTHENIA [None]
  - BODY TEMPERATURE DECREASED [None]
  - DIARRHOEA [None]
  - DYSPNOEA [None]
  - HEART RATE INCREASED [None]
  - HYPOTENSION [None]
  - HYPOVOLAEMIA [None]
  - LEUKOCYTOSIS [None]
  - RENAL FAILURE ACUTE [None]
  - RESPIRATORY RATE INCREASED [None]
  - SYNCOPE [None]
